FAERS Safety Report 14707659 (Version 1)
Quarter: 2018Q2

REPORT INFORMATION
  Report Type: Spontaneous
  Country: US (occurrence: US)
  Receive Date: 20180403
  Receipt Date: 20180403
  Transmission Date: 20180711
  Serious: No
  Sender: FDA-Public Use
  Company Number: US-ELI_LILLY_AND_COMPANY-US201803003396

PATIENT
  Age: 11 Year
  Sex: Male

DRUGS (2)
  1. HUMATROPE [Suspect]
     Active Substance: SOMATROPIN
     Dosage: 0.8 MG, UNKNOWN
     Route: 058
  2. HUMATROPE [Suspect]
     Active Substance: SOMATROPIN
     Indication: GROWTH RETARDATION
     Dosage: UNK UNK, UNKNOWN
     Route: 058
     Dates: start: 20171228

REACTIONS (4)
  - Headache [Unknown]
  - Pain in extremity [Unknown]
  - Gait disturbance [Unknown]
  - Pyrexia [Unknown]

NARRATIVE: CASE EVENT DATE: 20180225
